FAERS Safety Report 20770309 (Version 6)
Quarter: 2022Q3

REPORT INFORMATION
  Report Type: Report from Study
  Country: CA (occurrence: CA)
  Receive Date: 20220429
  Receipt Date: 20220801
  Transmission Date: 20221026
  Serious: Yes (Disabling, Other)
  Sender: FDA-Public Use
  Company Number: CA-BoehringerIngelheim-2022-BI-163818

PATIENT
  Age: 79 Year
  Sex: Female
  Weight: 76.7 kg

DRUGS (3)
  1. OFEV [Suspect]
     Active Substance: NINTEDANIB
     Indication: Idiopathic pulmonary fibrosis
     Dosage: 150MG BID
     Route: 048
     Dates: start: 20220204, end: 20220512
  2. OFEV [Suspect]
     Active Substance: NINTEDANIB
     Indication: Interstitial lung disease
     Route: 048
     Dates: start: 20220517
  3. RAMIPRIL [Concomitant]
     Active Substance: RAMIPRIL
     Indication: Product used for unknown indication

REACTIONS (12)
  - Lymphadenopathy [Recovering/Resolving]
  - Weight decreased [Recovered/Resolved]
  - Hypertension [Recovered/Resolved]
  - Dizziness [Recovering/Resolving]
  - Feeling abnormal [Not Recovered/Not Resolved]
  - Diarrhoea [Recovered/Resolved]
  - Movement disorder [Recovered/Resolved]
  - Skin exfoliation [Unknown]
  - Nausea [Recovering/Resolving]
  - Headache [Recovering/Resolving]
  - Malaise [Recovering/Resolving]
  - Tooth disorder [Recovered/Resolved]

NARRATIVE: CASE EVENT DATE: 20210801
